FAERS Safety Report 9033197 (Version 1)
Quarter: 2013Q1

REPORT INFORMATION
  Report Type: Spontaneous
  Country: US (occurrence: US)
  Receive Date: 20130128
  Receipt Date: 20130128
  Transmission Date: 20140127
  Serious: No
  Sender: FDA-Public Use
  Company Number: US-ASTRAZENECA-2013SE05179

PATIENT
  Age: 77 Year
  Sex: Female
  Weight: 61.7 kg

DRUGS (5)
  1. CRESTOR [Suspect]
     Indication: BLOOD CHOLESTEROL INCREASED
     Route: 048
  2. AMLODIPINE DESTILATE [Concomitant]
     Indication: HYPERTENSION
  3. LOSARTAN POTASSIUM [Concomitant]
     Indication: HYPERTENSION
  4. LOVAZA [Concomitant]
     Indication: BLOOD TRIGLYCERIDES ABNORMAL
  5. VITAMINS [Concomitant]
     Indication: VITAMIN SUPPLEMENTATION

REACTIONS (3)
  - Chromaturia [Unknown]
  - Blood urine present [Unknown]
  - Liver function test abnormal [Unknown]
